FAERS Safety Report 14785165 (Version 1)
Quarter: 2018Q2

REPORT INFORMATION
  Report Type: Report from Study
  Country: ES (occurrence: ES)
  Receive Date: 20180420
  Receipt Date: 20180420
  Transmission Date: 20180711
  Serious: Yes (Hospitalization)
  Sender: FDA-Public Use
  Company Number: ES-ASTRAZENECA-2018SE51821

PATIENT
  Age: 26988 Day
  Sex: Female
  Weight: 78 kg

DRUGS (12)
  1. LORAZEPAM. [Concomitant]
     Active Substance: LORAZEPAM
     Route: 048
     Dates: start: 2015
  2. HIBOR [Concomitant]
     Active Substance: BEMIPARIN SODIUM
     Route: 003
     Dates: start: 20160609
  3. DIAZEPAM. [Concomitant]
     Active Substance: DIAZEPAM
     Route: 048
     Dates: start: 20170208
  4. GLAAN LACTOCAPIL VITAMIN SUPPLEMENT [Concomitant]
     Route: 048
     Dates: start: 20170503
  5. ACECLOFENAC [Concomitant]
     Active Substance: ACECLOFENAC
     Route: 048
     Dates: start: 20170208
  6. LOPERAMIDE [Concomitant]
     Active Substance: LOPERAMIDE
     Dosage: AS REQUIRED
     Route: 048
     Dates: start: 20160714
  7. FENTANYL CITRATE. [Concomitant]
     Active Substance: FENTANYL CITRATE
     Route: 055
     Dates: start: 20170322
  8. METOCLOPRAMIDE HYDROCHLORIDE. [Concomitant]
     Active Substance: METOCLOPRAMIDE HYDROCHLORIDE
     Dosage: AS REQUIRED
     Route: 048
     Dates: start: 20170503
  9. TAGRISSO [Suspect]
     Active Substance: OSIMERTINIB
     Indication: NON-SMALL CELL LUNG CANCER
     Route: 048
     Dates: start: 20151214
  10. PREGABALIN. [Concomitant]
     Active Substance: PREGABALIN
     Route: 048
     Dates: start: 20170208
  11. METAMIZOLE [Concomitant]
     Active Substance: METAMIZOLE
     Route: 048
     Dates: start: 20170208
  12. FENTANYL. [Concomitant]
     Active Substance: FENTANYL
     Dosage: EVERY 48 HOURS
     Route: 003
     Dates: start: 20171204

REACTIONS (1)
  - Pericardial effusion [Recovering/Resolving]

NARRATIVE: CASE EVENT DATE: 20180115
